FAERS Safety Report 24882383 (Version 1)
Quarter: 2025Q1

REPORT INFORMATION
  Report Type: Spontaneous
  Country: US (occurrence: US)
  Receive Date: 20250124
  Receipt Date: 20250124
  Transmission Date: 20250409
  Serious: Yes (Other)
  Sender: INVENTIA HEALTHCARE PRIVATE LIMITED
  Company Number: US-Inventia-000776

PATIENT
  Age: 70 Year
  Sex: Female

DRUGS (3)
  1. DULOXETINE [Suspect]
     Active Substance: DULOXETINE
     Indication: Anxiety
  2. SOTALOL [Concomitant]
     Active Substance: SOTALOL
  3. DULOXETINE [Suspect]
     Active Substance: DULOXETINE
     Indication: Depression

REACTIONS (3)
  - Atrial fibrillation [Not Recovered/Not Resolved]
  - Cognitive disorder [Unknown]
  - Transient ischaemic attack [Unknown]
